FAERS Safety Report 8785804 (Version 1)
Quarter: 2012Q4

REPORT INFORMATION
  Report Type: 
  Country: ES (occurrence: ES)
  Receive Date: 20120914
  Receipt Date: 20120914
  Transmission Date: 20130627
  Serious: Yes (Other)
  Sender: FDA-Public Use
  Company Number: ES-GLAXOSMITHKLINE-B0829220A

PATIENT
  Age: 39 Year
  Sex: Female

DRUGS (1)
  1. NEOTIGASON [Suspect]
     Indication: PRODUCT USED FOR UNKNOWN INDICATION
     Route: 067
     Dates: start: 201112, end: 201205

REACTIONS (2)
  - Abortion induced [Fatal]
  - Exposure via body fluid [Unknown]
